FAERS Safety Report 13884124 (Version 1)
Quarter: 2017Q3

REPORT INFORMATION
  Report Type: Spontaneous
  Country: BR (occurrence: BR)
  Receive Date: 20170821
  Receipt Date: 20170821
  Transmission Date: 20171127
  Serious: Yes (Hospitalization, Other)
  Sender: FDA-Public Use
  Company Number: BR-ROCHE-1976583

PATIENT
  Sex: Male

DRUGS (1)
  1. RIVOTRIL [Suspect]
     Active Substance: CLONAZEPAM
     Indication: INSOMNIA
     Route: 048
     Dates: start: 2008

REACTIONS (11)
  - Hypotension [Unknown]
  - Pulmonary embolism [Unknown]
  - Off label use [Unknown]
  - Product dropper issue [Unknown]
  - Fibrin D dimer increased [Unknown]
  - Incorrect dose administered [Unknown]
  - Infarction [Unknown]
  - Malaise [Unknown]
  - Tremor [Unknown]
  - Hypersomnia [Unknown]
  - Incorrect route of drug administration [Unknown]
